FAERS Safety Report 19688137 (Version 1)
Quarter: 2021Q3

REPORT INFORMATION
  Report Type: Spontaneous
  Country: US (occurrence: US)
  Receive Date: 20210811
  Receipt Date: 20210811
  Transmission Date: 20211014
  Serious: No
  Sender: FDA-Public Use
  Company Number: US-GALDERMA-US2021014174

PATIENT

DRUGS (4)
  1. PROACTIV POST ACNE SCAR GEL [Concomitant]
     Indication: ACNE
     Dosage: 1 DOSAGE FORM, QD, DAILY
     Route: 061
     Dates: start: 20210615, end: 20210625
  2. PROACTIV MD DAILY OIL CONTROL SPF 30 [Suspect]
     Active Substance: AVOBENZONE\OCTISALATE\OCTOCRYLENE
     Indication: ACNE
     Dosage: 1 DOSAGE FORM, QD, DAILY
     Route: 061
     Dates: start: 20210615, end: 20210625
  3. PROACTIV MD ULTRA HYDRATING MOISTURIZER [Concomitant]
     Indication: ACNE
     Dosage: 1 DOSAGE FORM, QD, DAILY
     Route: 061
     Dates: start: 20210615, end: 20210625
  4. PROACTIV MD ADAPALENE ACNE TREATMENT [Suspect]
     Active Substance: ADAPALENE
     Indication: ACNE
     Dosage: 1 DOSAGE FORM, QD, DAILY
     Route: 061
     Dates: start: 20210615, end: 20210625

REACTIONS (5)
  - Skin hyperpigmentation [Recovered/Resolved]
  - Skin irritation [Recovered/Resolved]
  - Acne [Recovered/Resolved]
  - Skin burning sensation [Recovered/Resolved]
  - Chemical burn of skin [Recovered/Resolved]

NARRATIVE: CASE EVENT DATE: 20210622
